FAERS Safety Report 10251036 (Version 2)
Quarter: 2014Q2

REPORT INFORMATION
  Report Type: Spontaneous
  Country: FR (occurrence: FR)
  Receive Date: 20140620
  Receipt Date: 20140620
  Transmission Date: 20141212
  Serious: Yes (Life-Threatening, Hospitalization)
  Sender: FDA-Public Use
  Company Number: FR-B.I. PHARMACEUTICALS,INC./RIDGEFIELD-2013-FF-02051FF

PATIENT
  Age: 72 Year
  Sex: Male

DRUGS (7)
  1. PRADAXA [Suspect]
     Indication: ATRIAL FIBRILLATION
     Dosage: 300 MG
     Route: 048
     Dates: start: 201305, end: 20130715
  2. AMIODARONE [Suspect]
     Indication: ATRIAL FIBRILLATION
     Dosage: 142.8571 MG
     Route: 048
     Dates: start: 2013
  3. CRESTOR [Concomitant]
     Dosage: 5 MG
     Route: 048
  4. PARACETAMOL [Concomitant]
     Route: 048
  5. SALBUTAMOL [Concomitant]
     Dosage: 400 NR
     Route: 055
  6. SYMBICORT TURBUHALER [Concomitant]
     Dosage: 1600 NR
     Route: 055
  7. MICARDIS PLUS [Concomitant]
     Dosage: 40/12.5 MG, 1 IN THE EVENING
     Route: 048

REACTIONS (3)
  - Epistaxis [Recovered/Resolved]
  - Respiratory distress [Recovered/Resolved]
  - Drug interaction [Recovered/Resolved]
